FAERS Safety Report 8604208-0 (Version None)
Quarter: 2012Q3

REPORT INFORMATION
  Report Type: 
  Country: None (occurrence: None)
  Receive Date: 20120820
  Receipt Date: 20120814
  Transmission Date: 20120928
  Serious: No
  Sender: FDA-Public Use
  Company Number: US-PFIZER INC-2012199395

PATIENT
  Age: 43 Year
  Sex: Female
  Weight: 63.492 kg

DRUGS (3)
  1. ADVIL [Suspect]
     Indication: HEADACHE
     Dosage: UNK
     Route: 048
     Dates: end: 20120801
  2. ADVIL [Suspect]
     Indication: MIGRAINE
  3. SINGULAIR [Concomitant]
     Indication: ASTHMA
     Dosage: UNK

REACTIONS (1)
  - EYE SWELLING [None]
